FAERS Safety Report 5749237-X (Version None)
Quarter: 2008Q2

REPORT INFORMATION
  Report Type: 
  Country: None (occurrence: None)
  Receive Date: 20080521
  Receipt Date: 20080521
  Transmission Date: 20081010
  Serious: No
  Sender: FDA-Public Use
  Company Number: None

PATIENT
  Age: 3 Year
  Sex: Male
  Weight: 18.1439 kg

DRUGS (4)
  1. SINGULAIR [Suspect]
     Indication: ASTHMA
     Dates: start: 20020101, end: 20050101
  2. SINGULAIR [Suspect]
     Indication: MULTIPLE ALLERGIES
     Dates: start: 20020101, end: 20050101
  3. SINGULAIR [Suspect]
     Indication: ASTHMA
     Dates: start: 20020101, end: 20050101
  4. SINGULAIR [Suspect]
     Indication: MULTIPLE ALLERGIES
     Dates: start: 20020101, end: 20050101

REACTIONS (4)
  - ABNORMAL BEHAVIOUR [None]
  - AGGRESSION [None]
  - ANGER [None]
  - MOOD ALTERED [None]
